FAERS Safety Report 9880276 (Version 2)
Quarter: 2014Q1

REPORT INFORMATION
  Report Type: Report from Study
  Country: US (occurrence: US)
  Receive Date: 20140207
  Receipt Date: 20140207
  Transmission Date: 20141002
  Serious: Yes (Other)
  Sender: FDA-Public Use
  Company Number: US-ROCHE-1290960

PATIENT
  Age: 32 Year
  Sex: Male
  Weight: 65.38 kg

DRUGS (4)
  1. PEGASYS [Suspect]
     Indication: CHRONIC HEPATITIS C
     Route: 058
     Dates: start: 20130904
  2. COPEGUS [Suspect]
     Indication: CHRONIC HEPATITIS C
     Route: 065
  3. LORAZEPAM [Concomitant]
     Indication: ANXIETY
     Route: 065
  4. RIBAPAK [Concomitant]
     Indication: HEPATITIS C
     Route: 048
     Dates: start: 20130904

REACTIONS (5)
  - Agitation [Recovering/Resolving]
  - Irritability [Unknown]
  - Anger [Unknown]
  - White blood cell count decreased [Not Recovered/Not Resolved]
  - Red blood cell count decreased [Not Recovered/Not Resolved]
